FAERS Safety Report 22230369 (Version 1)
Quarter: 2023Q2

REPORT INFORMATION
  Report Type: Spontaneous
  Country: US (occurrence: US)
  Receive Date: 20230419
  Receipt Date: 20230419
  Transmission Date: 20230722
  Serious: No
  Sender: FDA-Public Use
  Company Number: US-SA-SAC20230419000320

PATIENT
  Age: 1 Year
  Sex: Female
  Weight: 10.38 kg

DRUGS (6)
  1. DUPIXENT [Suspect]
     Active Substance: DUPILUMAB
     Indication: Dermatitis atopic
     Dosage: 200 MG, Q4W
     Route: 058
     Dates: start: 20230410
  2. MUPIROCIN [Concomitant]
     Active Substance: MUPIROCIN
  3. TACROLIMUS [Concomitant]
     Active Substance: TACROLIMUS
  4. MOMETASONE FUROATE [Concomitant]
     Active Substance: MOMETASONE FUROATE
  5. BENADRYL ALLERGY RELIEF PLUS DECONGESTANT [Concomitant]
  6. HYDROXYZINE HYDROCHLORIDE [Concomitant]
     Active Substance: HYDROXYZINE HYDROCHLORIDE

REACTIONS (1)
  - Pain [Unknown]
